FAERS Safety Report 15357471 (Version 1)
Quarter: 2018Q3

REPORT INFORMATION
  Report Type: Spontaneous
  Country: US (occurrence: US)
  Receive Date: 20180830
  Receipt Date: 20180830
  Transmission Date: 20181010
  Serious: Yes (Disabling)
  Sender: FDA-Public Use
  Company Number: None

PATIENT
  Age: 37 Year
  Sex: Female
  Weight: 63 kg

DRUGS (3)
  1. LEVOTHYROXINE/LIOTHYRONINE [Suspect]
     Active Substance: LEVOTHYROXINE\LIOTHYRONINE
     Indication: HYPOTHYROIDISM
     Dosage: ?          QUANTITY:90 TABLET(S);?
     Route: 048
     Dates: start: 20180105, end: 20180820
  2. MULTI VITAMIN [Concomitant]
     Active Substance: VITAMINS
  3. ZOLOFT [Concomitant]
     Active Substance: SERTRALINE HYDROCHLORIDE

REACTIONS (14)
  - Thyroid hormones increased [None]
  - Depression [None]
  - Product measured potency issue [None]
  - Impaired work ability [None]
  - Product use issue [None]
  - Product contamination [None]
  - Feeling abnormal [None]
  - Alopecia [None]
  - Weight increased [None]
  - Fatigue [None]
  - Mental disorder [None]
  - Therapy change [None]
  - Chest pain [None]
  - Product quality issue [None]

NARRATIVE: CASE EVENT DATE: 20180101
